FAERS Safety Report 7412054-9 (Version None)
Quarter: 2011Q2

REPORT INFORMATION
  Report Type: 
  Country: None (occurrence: None)
  Receive Date: 20110405
  Receipt Date: 20110329
  Transmission Date: 20111010
  Serious: Yes (Other)
  Sender: FDA-Public Use
  Company Number: 2011069247

PATIENT
  Age: 78 Year
  Sex: Male

DRUGS (2)
  1. PREVISCAN (FLUINDIONE) [Suspect]
     Indication: MYOCARDIAL INFARCTION
  2. FRAGMIN [Suspect]
     Indication: MYOCARDIAL INFARCTION

REACTIONS (1)
  - SHOULDER OPERATION [None]
